FAERS Safety Report 5288108-2 (Version None)
Quarter: 2007Q2

REPORT INFORMATION
  Report Type: 
  Country: None (occurrence: None)
  Receive Date: 20070405
  Receipt Date: 20070321
  Transmission Date: 20071010
  Serious: Yes (Other)
  Sender: FDA-Public Use
  Company Number: CA-AMGEN-US210515

PATIENT
  Sex: Female

DRUGS (2)
  1. ENBREL [Suspect]
     Indication: PSORIASIS
     Route: 058
     Dates: start: 20061220, end: 20070131
  2. ORTHO TRI-CYCLEN LO [Concomitant]
     Dates: start: 20020101

REACTIONS (6)
  - BALANCE DISORDER [None]
  - MULTIPLE SCLEROSIS [None]
  - PARAESTHESIA [None]
  - PHARYNGITIS STREPTOCOCCAL [None]
  - PRURITUS [None]
  - VISUAL DISTURBANCE [None]
